FAERS Safety Report 8456900-9 (Version None)
Quarter: 2012Q2

REPORT INFORMATION
  Report Type: 
  Country: None (occurrence: None)
  Receive Date: 20120621
  Receipt Date: 20120612
  Transmission Date: 20120825
  Serious: Yes (Other)
  Sender: FDA-Public Use
  Company Number: CA-JNJFOC-20120520714

PATIENT
  Sex: Male

DRUGS (2)
  1. REMICADE [Suspect]
     Route: 042
     Dates: start: 20100101
  2. REMICADE [Suspect]
     Indication: PSORIASIS
     Route: 042
     Dates: start: 20100408

REACTIONS (6)
  - MALAISE [None]
  - BLOOD PRESSURE INCREASED [None]
  - ASTHENIA [None]
  - PSORIASIS [None]
  - BLOOD GLUCOSE INCREASED [None]
  - HYPERHIDROSIS [None]
